FAERS Safety Report 20378223 (Version 1)
Quarter: 2022Q1

REPORT INFORMATION
  Report Type: Report from Study
  Country: EG (occurrence: EG)
  Receive Date: 20220126
  Receipt Date: 20220126
  Transmission Date: 20220423
  Serious: Yes (Other)
  Sender: FDA-Public Use
  Company Number: EG-NOVARTISPH-NVSC2021EG297599

PATIENT
  Age: 57 Year
  Sex: Male

DRUGS (3)
  1. ENTRESTO [Suspect]
     Active Substance: SACUBITRIL\VALSARTAN
     Indication: Cardiac failure
     Dosage: 50 MG, BID (START DATE- 2 MONTHS AGO)
     Route: 048
  2. ENTRESTO [Suspect]
     Active Substance: SACUBITRIL\VALSARTAN
     Dosage: 50 MG, QD
     Route: 048
  3. ENTRESTO [Suspect]
     Active Substance: SACUBITRIL\VALSARTAN
     Dosage: 50 MG, BID
     Route: 048
     Dates: end: 20211231

REACTIONS (10)
  - Diabetes mellitus [Not Recovered/Not Resolved]
  - Syncope [Unknown]
  - Dizziness [Unknown]
  - Fall [Unknown]
  - Liver injury [Not Recovered/Not Resolved]
  - Renal injury [Not Recovered/Not Resolved]
  - Hypertension [Not Recovered/Not Resolved]
  - Colon injury [Not Recovered/Not Resolved]
  - Suffocation feeling [Recovered/Resolved]
  - Off label use [Unknown]

NARRATIVE: CASE EVENT DATE: 20211225
